FAERS Safety Report 5616248-4 (Version None)
Quarter: 2008Q1

REPORT INFORMATION
  Report Type: 
  Country: None (occurrence: None)
  Receive Date: 20080204
  Receipt Date: 20080129
  Transmission Date: 20080703
  Serious: Yes (Life-Threatening, Hospitalization)
  Sender: FDA-Public Use
  Company Number: 2008000144

PATIENT
  Age: 79 Year
  Sex: Male

DRUGS (6)
  1. ERLOTINIB (ERLOTINIB HC1) (TABLET) (ERLOTINIB HC1) [Suspect]
     Indication: NON-SMALL CELL LUNG CANCER
     Dosage: 150, QD, ORAL
     Route: 048
     Dates: start: 20070611
  2. INDERAL LA (PROPANOLOL HYDROCHLORIDE) [Concomitant]
  3. PLAVIX [Concomitant]
  4. VYTORIN [Concomitant]
  5. LISINOPRIL [Concomitant]
  6. BEVACIZUMAB (INJECTION FOR INFUSION) [Suspect]
     Dosage: 1470, Q3W, INTRAVENOUS
     Route: 042
     Dates: start: 20070611

REACTIONS (5)
  - ACTIVATED PARTIAL THROMBOPLASTIN TIME PROLONGED [None]
  - AORTIC EMBOLUS [None]
  - CLOSTRIDIUM DIFFICILE SEPSIS [None]
  - DEEP VEIN THROMBOSIS [None]
  - THROMBOSIS [None]
